FAERS Safety Report 26117047 (Version 1)
Quarter: 2025Q4

REPORT INFORMATION
  Report Type: Spontaneous
  Country: US (occurrence: US)
  Receive Date: 20251203
  Receipt Date: 20251203
  Transmission Date: 20260118
  Serious: Yes (Death, Life-Threatening, Hospitalization)
  Sender: DR REDDYS
  Company Number: None

PATIENT
  Age: 19 Year
  Sex: Male

DRUGS (4)
  1. VALPROATE [Suspect]
     Active Substance: VALPROIC ACID
     Indication: Mania
  2. VALPROATE [Suspect]
     Active Substance: VALPROIC ACID
     Indication: Psychotic disorder
  3. ARIPIPRAZOLE [Concomitant]
     Active Substance: ARIPIPRAZOLE
     Indication: Mania
  4. ARIPIPRAZOLE [Concomitant]
     Active Substance: ARIPIPRAZOLE
     Indication: Psychotic disorder

REACTIONS (6)
  - Brain herniation [Fatal]
  - Ornithine transcarbamoylase deficiency [Not Recovered/Not Resolved]
  - Unmasking of previously unidentified disease [Not Recovered/Not Resolved]
  - Seizure [Not Recovered/Not Resolved]
  - Brain oedema [Not Recovered/Not Resolved]
  - Hyperammonaemia [Not Recovered/Not Resolved]
